FAERS Safety Report 8312237-X (Version None)
Quarter: 2012Q1

REPORT INFORMATION
  Report Type: 
  Country: None (occurrence: None)
  Receive Date: 20120315
  Receipt Date: 20110511
  Transmission Date: 20120608
  Serious: Yes (Other)
  Sender: FDA-Public Use
  Company Number: PHHY2011US33275

PATIENT
  Age: 47 Year
  Sex: Male

DRUGS (2)
  1. GILENYA [Suspect]
     Indication: MULTIPLE SCLEROSIS
     Dosage: 0.5 MG, QD, ORAL
     Route: 048
     Dates: start: 20110228, end: 20110405
  2. LEXAPRO [Concomitant]

REACTIONS (7)
  - INSOMNIA [None]
  - FATIGUE [None]
  - INFLUENZA LIKE ILLNESS [None]
  - HEADACHE [None]
  - VISION BLURRED [None]
  - CYSTOID MACULAR OEDEMA [None]
  - BACK PAIN [None]
